FAERS Safety Report 6108146-7 (Version None)
Quarter: 2009Q1

REPORT INFORMATION
  Report Type: 
  Country: None (occurrence: None)
  Receive Date: 20090309
  Receipt Date: 20090224
  Transmission Date: 20090719
  Serious: Yes (Other)
  Sender: FDA-Public Use
  Company Number: US-ROCHE-612659

PATIENT
  Sex: Female

DRUGS (1)
  1. BONIVA [Suspect]
     Indication: DRUG USE FOR UNKNOWN INDICATION
     Dosage: MEDICATION ERROR
     Route: 042
     Dates: start: 20090120, end: 20090120

REACTIONS (5)
  - DRUG ADMINISTRATION ERROR [None]
  - INJECTION SITE CELLULITIS [None]
  - INJECTION SITE EXTRAVASATION [None]
  - INJECTION SITE IRRITATION [None]
  - INJECTION SITE THROMBOSIS [None]
